FAERS Safety Report 9867020 (Version 1)
Quarter: 2014Q1

REPORT INFORMATION
  Report Type: Spontaneous
  Country: CO (occurrence: CO)
  Receive Date: 20140204
  Receipt Date: 20140204
  Transmission Date: 20141002
  Serious: Yes (Death)
  Sender: FDA-Public Use
  Company Number: CO-JNJFOC-20140200562

PATIENT
  Sex: Male

DRUGS (1)
  1. REMINYL [Suspect]
     Indication: AMNESIA
     Route: 048
     Dates: start: 20121127, end: 20131024

REACTIONS (1)
  - Prostate cancer [Fatal]
